FAERS Safety Report 6128726-2 (Version None)
Quarter: 2009Q1

REPORT INFORMATION
  Report Type: 
  Country: None (occurrence: None)
  Receive Date: 20090323
  Receipt Date: 20090323
  Transmission Date: 20090719
  Serious: Yes (Hospitalization)
  Sender: FDA-Public Use
  Company Number: US-PFIZER INC-2008150346

PATIENT
  Sex: Female

DRUGS (2)
  1. LIPITOR [Suspect]
  2. ALDARA [Suspect]
     Dosage: UNK
     Route: 061
     Dates: end: 20081125

REACTIONS (3)
  - ADVERSE DRUG REACTION [None]
  - CARDIAC FAILURE [None]
  - PLEURAL EFFUSION [None]
